FAERS Safety Report 8248042 (Version 2)
Quarter: 2012Q4

REPORT INFORMATION
  Report Type: 
  Country: JP (occurrence: JP)
  Receive Date: 20111117
  Receipt Date: 20121214
  Transmission Date: 20130627
  Serious: Yes (Hospitalization, Other)
  Sender: FDA-Public Use
  Company Number: JP-ROCHE-1009697

PATIENT
  Age: 54 Year
  Sex: Female
  Weight: 60 kg

DRUGS (24)
  1. TOCILIZUMAB [Suspect]
     Indication: RHEUMATOID ARTHRITIS
     Dosage: Dosage is uncertain.
     Route: 041
     Dates: start: 20081219, end: 20090608
  2. TOCILIZUMAB [Suspect]
     Indication: RHEUMATOID ARTHRITIS
     Route: 041
     Dates: start: 20090706, end: 20110117
  3. PREDNISOLONE [Suspect]
     Indication: RHEUMATOID ARTHRITIS
     Route: 048
     Dates: start: 20101219, end: 20111218
  4. METHOTREXATE [Concomitant]
     Indication: RHEUMATOID ARTHRITIS
     Route: 048
     Dates: start: 20101219, end: 20111218
  5. MOHRUS [Concomitant]
     Indication: RHEUMATOID ARTHRITIS
     Route: 061
     Dates: start: 20101219, end: 20111218
  6. BLOPRESS [Concomitant]
     Indication: RHEUMATOID ARTHRITIS
     Route: 048
  7. BLOPRESS [Concomitant]
     Route: 048
     Dates: start: 20101219, end: 20111218
  8. VOLTAREN [Concomitant]
     Indication: RHEUMATOID ARTHRITIS
     Route: 054
     Dates: start: 20101219, end: 20111218
  9. ACTONEL [Concomitant]
     Indication: RHEUMATOID ARTHRITIS
     Route: 048
  10. ACTONEL [Concomitant]
     Route: 048
     Dates: start: 20101219, end: 20111218
  11. MAGNESIUM OXIDE [Concomitant]
     Indication: RHEUMATOID ARTHRITIS
     Dosage: Amount 3
     Route: 048
     Dates: start: 20101219, end: 20111218
  12. THYRADIN-S [Concomitant]
     Indication: RHEUMATOID ARTHRITIS
     Route: 048
     Dates: start: 20101219, end: 20111218
  13. ALFAROL [Concomitant]
     Indication: RHEUMATOID ARTHRITIS
     Route: 048
     Dates: start: 20101219, end: 20111218
  14. AMLODIN [Concomitant]
     Indication: RHEUMATOID ARTHRITIS
     Route: 048
     Dates: start: 20101219, end: 20111218
  15. MARZULENE-S [Concomitant]
     Indication: RHEUMATOID ARTHRITIS
     Route: 048
     Dates: start: 20101219, end: 20111218
  16. ZANTAC [Concomitant]
     Indication: RHEUMATOID ARTHRITIS
     Route: 048
     Dates: start: 20101219, end: 20111218
  17. CINAL [Concomitant]
     Indication: RHEUMATOID ARTHRITIS
     Route: 048
     Dates: start: 20101219, end: 20111218
  18. MORPHINE HYDROCHLORIDE [Concomitant]
     Route: 048
  19. PURSENNID [Concomitant]
     Indication: CONSTIPATION
     Dosage: Single use
     Route: 048
  20. INFREE [Concomitant]
     Indication: RHEUMATOID ARTHRITIS
     Route: 048
     Dates: start: 20101219, end: 20111218
  21. NAUZELIN [Concomitant]
     Route: 048
  22. RHYTHMY [Concomitant]
     Indication: INSOMNIA
     Dosage: Single use
     Route: 048
  23. CERCINE [Concomitant]
     Indication: INSOMNIA
     Dosage: Single use
     Route: 048
  24. CRAVIT [Concomitant]
     Route: 048

REACTIONS (2)
  - Device related infection [Recovered/Resolved]
  - Cholelithiasis [Recovered/Resolved]
